FAERS Safety Report 7959449-2 (Version None)
Quarter: 2011Q4

REPORT INFORMATION
  Report Type: 
  Country: None (occurrence: None)
  Receive Date: 20111206
  Receipt Date: 20111201
  Transmission Date: 20120403
  Serious: No
  Sender: FDA-Public Use
  Company Number: US-PFIZER INC-2011294954

PATIENT
  Sex: Female
  Weight: 58.05 kg

DRUGS (3)
  1. LISINOPRIL [Concomitant]
     Indication: HYPERTENSION
     Dosage: 20 MG, DAILY
  2. TOVIAZ [Suspect]
     Indication: POLYURIA
     Dosage: 8 MG, DAILY
     Dates: start: 20111101
  3. PLAVIX [Concomitant]
     Indication: ANTIPLATELET THERAPY
     Dosage: UNK

REACTIONS (2)
  - DRUG INEFFECTIVE [None]
  - INSOMNIA [None]
